FAERS Safety Report 16969131 (Version 1)
Quarter: 2019Q4

REPORT INFORMATION
  Report Type: Report from Study
  Country: US (occurrence: US)
  Receive Date: 20191029
  Receipt Date: 20191029
  Transmission Date: 20200122
  Serious: Yes (Hospitalization)
  Sender: FDA-Public Use
  Company Number: US-TEVA-2019-US-1128853

PATIENT
  Age: 16 Day
  Sex: Male

DRUGS (3)
  1. ACETAMINOPHEN. [Suspect]
     Active Substance: ACETAMINOPHEN
     Route: 063
  2. OXYCODONE [Suspect]
     Active Substance: OXYCODONE
     Route: 063
  3. CYCLOBENZAPRINE. [Suspect]
     Active Substance: CYCLOBENZAPRINE
     Route: 063

REACTIONS (4)
  - Hypotension [Unknown]
  - Bradycardia [Unknown]
  - Respiratory arrest [Unknown]
  - Exposure via breast milk [Unknown]
